FAERS Safety Report 6593102-5 (Version None)
Quarter: 2010Q1

REPORT INFORMATION
  Report Type: 
  Country: None (occurrence: None)
  Receive Date: 20100222
  Receipt Date: 20100209
  Transmission Date: 20100710
  Serious: Yes (Hospitalization)
  Sender: FDA-Public Use
  Company Number: IT-B.I. PHARMACEUTICALS,INC./RIDGEFIELD-2010-DE-00700GD

PATIENT
  Sex: Male

DRUGS (6)
  1. TIPRANAVIR [Suspect]
     Indication: HIV INFECTION
  2. ENFUVIRTIDE [Suspect]
     Indication: HIV INFECTION
  3. ZIDOVUDINE [Suspect]
     Indication: HIV INFECTION
  4. TENOFOVIR [Suspect]
     Indication: HIV INFECTION
  5. LAMIVUDINE [Suspect]
     Indication: HIV INFECTION
  6. AMPHOTERICIN B [Suspect]
     Indication: FUNGAL INFECTION
     Dosage: 1.5 MG/KG THREE TIMES WEEKLY

REACTIONS (3)
  - OEDEMA PERIPHERAL [None]
  - OLIGURIA [None]
  - RENAL IMPAIRMENT [None]
